FAERS Safety Report 19393771 (Version 1)
Quarter: 2021Q2

REPORT INFORMATION
  Report Type: Spontaneous
  Country: US (occurrence: US)
  Receive Date: 20210609
  Receipt Date: 20210609
  Transmission Date: 20210717
  Serious: Yes (Hospitalization)
  Sender: FDA-Public Use
  Company Number: None

PATIENT
  Sex: Female
  Weight: 55.4 kg

DRUGS (11)
  1. TAXOL [Suspect]
     Active Substance: PACLITAXEL
     Dates: end: 20210604
  2. HERCEPTIN [Concomitant]
     Active Substance: TRASTUZUMAB
     Dates: end: 20210521
  3. IMODIUM [Concomitant]
     Active Substance: LOPERAMIDE HYDROCHLORIDE
  4. LISINOPRIL. [Concomitant]
     Active Substance: LISINOPRIL
  5. PERTUZUMAB. [Concomitant]
     Active Substance: PERTUZUMAB
     Dates: end: 20210521
  6. CALCIUM [Concomitant]
     Active Substance: CALCIUM
  7. BENADRYL [Concomitant]
     Active Substance: DIPHENHYDRAMINE HYDROCHLORIDE
  8. COMPAZINE [Concomitant]
     Active Substance: PROCHLORPERAZINE MALEATE
  9. TRIAMCINOLONE TOPICAL TREATMENT [Concomitant]
  10. METFORMIN [Concomitant]
     Active Substance: METFORMIN HYDROCHLORIDE
  11. METOPROLOL. [Concomitant]
     Active Substance: METOPROLOL

REACTIONS (4)
  - Vomiting [None]
  - Gait disturbance [None]
  - Diarrhoea [None]
  - Asthenia [None]

NARRATIVE: CASE EVENT DATE: 20210428
